FAERS Safety Report 24315799 (Version 1)
Quarter: 2024Q3

REPORT INFORMATION
  Report Type: Spontaneous
  Country: CA (occurrence: CA)
  Receive Date: 20240913
  Receipt Date: 20240913
  Transmission Date: 20241016
  Serious: Yes (Life-Threatening, Hospitalization)
  Sender: ACCORD
  Company Number: None

PATIENT
  Age: 29 Year
  Sex: Female

DRUGS (10)
  1. DOCETAXEL [Suspect]
     Active Substance: DOCETAXEL\DOCETAXEL ANHYDROUS
     Indication: Chemotherapy
     Route: 042
  2. CYCLOPHOSPHAMIDE [Suspect]
     Active Substance: CYCLOPHOSPHAMIDE
     Indication: Product used for unknown indication
     Route: 042
  3. CEPHALEXIN [Concomitant]
     Active Substance: CEPHALEXIN
  4. DEXAMETHASONE [Concomitant]
     Active Substance: DEXAMETHASONE
     Route: 065
  5. GRANISETRON [Concomitant]
     Active Substance: GRANISETRON
  6. LUPRON [Concomitant]
     Active Substance: LEUPROLIDE ACETATE
  7. OLANZAPINE [Concomitant]
     Active Substance: OLANZAPINE
  8. ACETAMINOPHEN\OXYCODONE HYDROCHLORIDE [Concomitant]
     Active Substance: ACETAMINOPHEN\OXYCODONE HYDROCHLORIDE
  9. PEGFILGRASTIM [Concomitant]
     Active Substance: PEGFILGRASTIM
  10. RIVAROXABAN [Concomitant]
     Active Substance: RIVAROXABAN
     Route: 065

REACTIONS (10)
  - Cellulitis [Unknown]
  - Debridement [Unknown]
  - Tenosynovitis [Unknown]
  - Biopsy [Unknown]
  - Extravasation [Unknown]
  - Infusion related reaction [Unknown]
  - Dyspnoea [Unknown]
  - Flushing [Unknown]
  - Incisional drainage [Unknown]
  - Superficial vein thrombosis [Unknown]
